FAERS Safety Report 5091345-3 (Version None)
Quarter: 2006Q3

REPORT INFORMATION
  Report Type: 
  Country: None (occurrence: None)
  Receive Date: 20060824
  Receipt Date: 20060810
  Transmission Date: 20061208
  Serious: Yes (Hospitalization)
  Sender: FDA-Public Use
  Company Number: CLOF-10311

PATIENT

DRUGS (5)
  1. CLOFARABINE [Suspect]
     Indication: ACUTE LEUKAEMIA
     Dates: start: 20060725
  2. CYCLOPHOSPHAMIDE [Suspect]
     Indication: ACUTE LEUKAEMIA
  3. ACETAMINOPHEN [Concomitant]
  4. ALLOPURINOL [Concomitant]
  5. HYDROCORTISONE [Concomitant]

REACTIONS (4)
  - HYPOTENSION [None]
  - PYREXIA [None]
  - RENAL FAILURE [None]
  - SEPSIS [None]
